FAERS Safety Report 14631297 (Version 2)
Quarter: 2018Q1

REPORT INFORMATION
  Report Type: Report from Study
  Country: NL (occurrence: NL)
  Receive Date: 20180313
  Receipt Date: 20180320
  Transmission Date: 20180509
  Serious: Yes (Hospitalization)
  Sender: FDA-Public Use
  Company Number: NL-IPSEN BIOPHARMACEUTICALS, INC.-2017-15922

PATIENT
  Age: 72 Year
  Sex: Male

DRUGS (1)
  1. SOMATULINE AUTOSOLUTION 120MG [Suspect]
     Active Substance: LANREOTIDE ACETATE
     Indication: NEUROENDOCRINE TUMOUR
     Dosage: 120 MG
     Route: 058
     Dates: start: 20160407

REACTIONS (8)
  - Back pain [Unknown]
  - Nerve root compression [Not Recovered/Not Resolved]
  - Groin pain [Unknown]
  - Balance disorder [Unknown]
  - Hyperglycaemia [Unknown]
  - Loss of control of legs [Unknown]
  - Pain [Unknown]
  - Blue toe syndrome [Unknown]

NARRATIVE: CASE EVENT DATE: 201711
